FAERS Safety Report 8743288 (Version 2)
Quarter: 2013Q4

REPORT INFORMATION
  Report Type: Report from Study
  Country: JP (occurrence: JP)
  Receive Date: 20120824
  Receipt Date: 20131108
  Transmission Date: 20140711
  Serious: Yes (Hospitalization)
  Sender: FDA-Public Use
  Company Number: JP-009507513-2012SP028299

PATIENT
  Age: 64 Year
  Sex: Female
  Weight: 56 kg

DRUGS (21)
  1. PEGINTRON [Suspect]
     Dosage: 1.5 ?G/KG, QW
     Route: 058
     Dates: start: 20120314, end: 20120413
  2. PEGINTRON [Suspect]
     Dosage: UNK UNK, UNKNOWN
     Route: 058
     Dates: end: 20120416
  3. REBETOL [Suspect]
     Indication: HEPATITIS C
     Dosage: 600 MG, QD
     Route: 048
     Dates: start: 20120314, end: 20120411
  4. REBETOL [Suspect]
     Dosage: 200 MG, QD
     Route: 048
     Dates: start: 20120412, end: 20120416
  5. TELAVIC [Suspect]
     Indication: HEPATITIS C
     Dosage: 2250 MG, QD
     Route: 048
     Dates: start: 20120314, end: 20120412
  6. TELAVIC [Suspect]
     Dosage: 1750 MG, QD
     Route: 048
     Dates: start: 20120413, end: 20120413
  7. TELAVIC [Suspect]
     Dosage: 1500 MG, QD
     Route: 048
     Dates: start: 20120414, end: 20120416
  8. SELBEX [Concomitant]
     Indication: PROPHYLAXIS
     Dosage: AS NEEDED 50 MILLIGRAM PER DAY, STOP DATE UPDATED TO 14MAR2012(UPDATE 28JUN2012)
     Route: 048
     Dates: start: 20120314, end: 20120314
  9. TAKEPRON [Concomitant]
     Indication: DUODENAL ULCER
     Dosage: 15 MG, QD
  10. MARZULENE ES [Concomitant]
     Indication: DUODENAL ULCER
     Dosage: 2 DF, QD
     Route: 048
  11. AMLODIN OD [Concomitant]
     Indication: HYPERTENSION
     Dosage: 5 MG, QD
     Route: 048
  12. MYSER (CYCLOSERINE) [Concomitant]
     Dosage: Q.S PER DAY, AS NEEDED.   (UPDATE 28JUN2012): STOP DATE: 28MAR2012
     Route: 061
     Dates: start: 20120317, end: 20120328
  13. ALLELOCK [Concomitant]
     Dosage: (UPDATE 28JUN2012): STOP DATE-26MAR2012
     Route: 048
     Dates: start: 20120317, end: 20120326
  14. NEOMALLERMIN TR [Concomitant]
     Indication: ERYTHEMA
     Dosage: (UPDATE 28JUN2012):26MAR2012
     Route: 048
     Dates: start: 20120318, end: 20120326
  15. AMINO ACIDS (UNSPECIFIED) [Concomitant]
     Dosage: 500 ML, QD
     Route: 042
     Dates: start: 20120322, end: 20120327
  16. ASCORBIC ACID (+) VITAMIN B COMPLEX [Concomitant]
     Dosage: DRUG FORM: UNKNOWN
     Route: 042
     Dates: start: 20120326, end: 20120327
  17. DEXTROSE (+) ELECTROLYTES (UNSPECIFIED) (+) SODIUM LACTATE [Concomitant]
     Dosage: DRUG FORM: UNKNOWN
     Route: 065
     Dates: start: 20120412, end: 20120414
  18. CYANOCOBALAMIN (+) PYRIDOXINE HYDROCHLORIDE (+) THIAMINE DISULFIDE [Concomitant]
     Dosage: 1 V/ DAY
     Route: 042
     Dates: start: 20120412, end: 20120414
  19. FLADD [Concomitant]
     Dosage: 20 MG, QD
     Route: 042
     Dates: start: 20120412, end: 20120414
  20. ASCORBIC ACID [Concomitant]
     Dosage: 100 MG, QD
     Route: 042
     Dates: start: 20120412, end: 20120414
  21. URSO [Concomitant]
     Indication: HEPATITIS C
     Dosage: 600 MG, QD
     Route: 048
     Dates: start: 20120510

REACTIONS (1)
  - Vomiting [Recovered/Resolved]
